FAERS Safety Report 4659042-3 (Version None)
Quarter: 2005Q2

REPORT INFORMATION
  Report Type: 
  Country: None (occurrence: None)
  Receive Date: 20050509
  Receipt Date: 20050422
  Transmission Date: 20051028
  Serious: Yes (Disabling)
  Sender: FDA-Public Use
  Company Number: A0555406A

PATIENT
  Age: 46 Year
  Sex: Male
  Weight: 75.3425 kg

DRUGS (5)
  1. LEXIVA [Suspect]
     Indication: HIV INFECTION
     Dosage: 700 MG/TWICE PER DAY/ORAL
     Route: 048
     Dates: start: 20041108, end: 20050419
  2. EPZICOM [Suspect]
     Indication: HIV INFECTION
     Dosage: 1 TABLET/PER DAY/ORAL
     Route: 048
     Dates: start: 20041108, end: 20050419
  3. RITONAVIR CAPSULE (RITONAVIR) [Suspect]
     Indication: HIV INFECTION
     Dosage: 100/TWICE  PER DAY/ORAL
     Route: 048
     Dates: start: 20041108, end: 20050419
  4. WELLBUTRIN [Suspect]
     Indication: DEPRESSION
     Dosage: 450 MG/PER DAY/ORAL
     Route: 048
     Dates: start: 19950201
  5. LOPERAMIDE HYDROCHLORIDE [Concomitant]

REACTIONS (10)
  - ANXIETY [None]
  - BALANCE DISORDER [None]
  - DEPRESSED MOOD [None]
  - DIZZINESS [None]
  - DRUG INTERACTION [None]
  - HEADACHE [None]
  - INSOMNIA [None]
  - IRRITABILITY [None]
  - PHOTOPHOBIA [None]
  - TREMOR [None]
